FAERS Safety Report 17081605 (Version 1)
Quarter: 2019Q4

REPORT INFORMATION
  Report Type: Spontaneous
  Country: US (occurrence: US)
  Receive Date: 20191126
  Receipt Date: 20191126
  Transmission Date: 20200122
  Serious: No
  Sender: FDA-Public Use
  Company Number: None

PATIENT
  Age: 24 Year
  Sex: Female
  Weight: 66.15 kg

DRUGS (1)
  1. FLUTICASONE. [Suspect]
     Active Substance: FLUTICASONE
     Indication: PRODUCTIVE COUGH
     Dosage: ?          OTHER ROUTE:INTRANASAL?
     Dates: start: 20190806, end: 20190822

REACTIONS (3)
  - Hordeolum [None]
  - Oral candidiasis [None]
  - Swelling of eyelid [None]

NARRATIVE: CASE EVENT DATE: 20190814
